FAERS Safety Report 4728216-5 (Version None)
Quarter: 2005Q3

REPORT INFORMATION
  Report Type: 
  Country: None (occurrence: None)
  Receive Date: 20050728
  Receipt Date: 20050728
  Transmission Date: 20060218
  Serious: Yes (Hospitalization)
  Sender: FDA-Public Use
  Company Number: None

PATIENT
  Age: 77 Year
  Sex: Male
  Weight: 69.3 kg

DRUGS (2)
  1. FLECAINIDE ACETATE [Suspect]
     Indication: ATRIAL FIBRILLATION
     Dosage: 100 MG  BID   ORAL
     Route: 048
     Dates: start: 19990101, end: 20050721
  2. DULOXETINE [Suspect]
     Dosage: 60 MG  DAILY   ORAL
     Route: 048
     Dates: start: 20050719, end: 20050719

REACTIONS (2)
  - BRADYCARDIA [None]
  - DIZZINESS [None]
